FAERS Safety Report 15716633 (Version 3)
Quarter: 2020Q1

REPORT INFORMATION
  Report Type: Spontaneous
  Country: US (occurrence: US)
  Receive Date: 20181213
  Receipt Date: 20200221
  Transmission Date: 20200409
  Serious: Yes (Hospitalization, Other)
  Sender: FDA-Public Use
  Company Number: US-BIOGEN-2018BI00625821

PATIENT
  Age: 11 Year
  Sex: Male

DRUGS (6)
  1. ALBUTEROL. [Concomitant]
     Active Substance: ALBUTEROL
     Indication: PRODUCT USED FOR UNKNOWN INDICATION
     Dosage: WITH CFC 90MCG/INH
     Route: 045
  2. SUMATRIPTAN. [Concomitant]
     Active Substance: SUMATRIPTAN
     Indication: MIGRAINE
     Dosage: 1 TAB AS NEEDED?CAN REPEAT X1 AFTER 2 HOURS IF NEEDED?MAS 2 TABS/DAY, 2 DAYS/WEEK
     Route: 048
  3. MAGNESIUM [Concomitant]
     Active Substance: MAGNESIUM
     Indication: PRODUCT USED FOR UNKNOWN INDICATION
     Route: 065
  4. CALCIUM [Concomitant]
     Active Substance: CALCIUM
     Indication: PRODUCT USED FOR UNKNOWN INDICATION
     Route: 065
  5. SPINRAZA [Suspect]
     Active Substance: NUSINERSEN
     Indication: SPINAL MUSCULAR ATROPHY
     Route: 050
     Dates: start: 20170914
  6. NAPROXEN SODIUM. [Concomitant]
     Active Substance: NAPROXEN SODIUM
     Indication: HEADACHE
     Dosage: TAKE WITH FOOD AND PLENTY OF WATER?LIMIT 2 DAYS PER WEEK
     Route: 048

REACTIONS (13)
  - Ureteric obstruction [Not Recovered/Not Resolved]
  - CSF pressure increased [Unknown]
  - Headache [Recovered/Resolved]
  - Procedural haemorrhage [Recovered/Resolved]
  - Complication associated with device [Unknown]
  - Migraine [Recovered/Resolved]
  - Superinfection [Not Recovered/Not Resolved]
  - Kidney enlargement [Not Recovered/Not Resolved]
  - Spinal fusion surgery [Recovered/Resolved with Sequelae]
  - Secretion discharge [Recovered/Resolved]
  - Asthenia [Recovered/Resolved]
  - Arachnoid cyst [Not Recovered/Not Resolved]
  - Cardiac arrest [Recovered/Resolved]

NARRATIVE: CASE EVENT DATE: 2017
